FAERS Safety Report 12675322 (Version 1)
Quarter: 2016Q3

REPORT INFORMATION
  Report Type: Spontaneous
  Country: US (occurrence: US)
  Receive Date: 20160822
  Receipt Date: 20160822
  Transmission Date: 20161109
  Serious: No
  Sender: FDA-Public Use
  Company Number: US-009507513-1608USA009570

PATIENT
  Sex: Female

DRUGS (1)
  1. DULERA [Suspect]
     Active Substance: FORMOTEROL FUMARATE DIHYDRATE\MOMETASONE FUROATE
     Dosage: 200/5 MICROGRAM, BID
     Route: 055

REACTIONS (4)
  - Cough [Not Recovered/Not Resolved]
  - Drug dose omission [Unknown]
  - Product container issue [Unknown]
  - Dyspnoea [Not Recovered/Not Resolved]
